FAERS Safety Report 8227945-9 (Version None)
Quarter: 2012Q1

REPORT INFORMATION
  Report Type: 
  Country: None (occurrence: None)
  Receive Date: 20120322
  Receipt Date: 20120314
  Transmission Date: 20120608
  Serious: Yes (Hospitalization)
  Sender: FDA-Public Use
  Company Number: PHHY2012FR023341

PATIENT
  Sex: Female

DRUGS (3)
  1. PACLITAXEL [Suspect]
     Dosage: 70 MG, CYCLIC DOSE
     Route: 042
     Dates: start: 20120229, end: 20120229
  2. PACLITAXEL [Suspect]
     Indication: LUNG NEOPLASM MALIGNANT
     Dosage: 70 MG, CYCLIC DOSE
     Route: 042
     Dates: start: 20120221, end: 20120221
  3. CARBOPLATIN [Concomitant]

REACTIONS (5)
  - URTICARIA [None]
  - DYSPNOEA [None]
  - BLOOD PRESSURE INCREASED [None]
  - SUFFOCATION FEELING [None]
  - MALAISE [None]
